FAERS Safety Report 6617037 (Version 2)
Quarter: 2013Q1

REPORT INFORMATION
  Report Type: Spontaneous
  Country: US (occurrence: US)
  Receive Date: 20080417
  Receipt Date: 20130320
  Transmission Date: 20140127
  Serious: Yes (Other)
  Sender: FDA-Public Use
  Company Number: US-JNJFOC-20080403417

PATIENT
  Sex: Female
  Weight: 58.97 kg

DRUGS (4)
  1. IBUPROFEN [Suspect]
     Indication: FIBROMYALGIA
     Dates: start: 2006
  2. IBUPROFEN [Suspect]
     Indication: FIBROMYALGIA
     Dates: start: 1988, end: 2006
  3. PREMARIN [Concomitant]
  4. ATENOLOL [Concomitant]

REACTIONS (1)
  - Blood potassium increased [Not Recovered/Not Resolved]
